FAERS Safety Report 5907028-0 (Version None)
Quarter: 2008Q4

REPORT INFORMATION
  Report Type: 
  Country: None (occurrence: None)
  Receive Date: 20081002
  Receipt Date: 20081002
  Transmission Date: 20090506
  Serious: Yes (Life-Threatening)
  Sender: FDA-Public Use
  Company Number: None

PATIENT
  Age: 53 Year
  Sex: Female
  Weight: 58.514 kg

DRUGS (1)
  1. SIMVASTATIN [Suspect]
     Indication: BLOOD CHOLESTEROL
     Dosage: 1 40MG TABLET ONCE A DAY PO, LESS THAN A MONTH
     Route: 048
     Dates: start: 20080325, end: 20080422

REACTIONS (5)
  - FATIGUE [None]
  - FEELING ABNORMAL [None]
  - HYPOAESTHESIA [None]
  - MIGRAINE [None]
  - MUSCULAR WEAKNESS [None]
